FAERS Safety Report 7329350-6 (Version None)
Quarter: 2011Q1

REPORT INFORMATION
  Report Type: 
  Country: None (occurrence: None)
  Receive Date: 20110303
  Receipt Date: 20110222
  Transmission Date: 20110831
  Serious: Yes (Hospitalization, Other)
  Sender: FDA-Public Use
  Company Number: US-MERCK-0901USA01686

PATIENT
  Age: 72 Year
  Sex: Female

DRUGS (1)
  1. FOSAMAX [Suspect]
     Indication: OSTEOPOROSIS
     Route: 048
     Dates: start: 20010201, end: 20060701

REACTIONS (44)
  - DEVICE RELATED INFECTION [None]
  - ISCHAEMIC ULCER [None]
  - ABSCESS [None]
  - CORONARY ARTERY DISEASE [None]
  - BODY TEMPERATURE INCREASED [None]
  - OROPHARYNGEAL PAIN [None]
  - ORAL INFECTION [None]
  - GASTRITIS [None]
  - MYOCARDIAL INFARCTION [None]
  - LOWER GASTROINTESTINAL HAEMORRHAGE [None]
  - VIRAL UPPER RESPIRATORY TRACT INFECTION [None]
  - PYREXIA [None]
  - DENTAL CARIES [None]
  - DEEP VEIN THROMBOSIS [None]
  - CITROBACTER INFECTION [None]
  - OSTEONECROSIS OF JAW [None]
  - HYPOTENSION [None]
  - PERIODONTITIS [None]
  - WEIGHT DECREASED [None]
  - EAR PAIN [None]
  - BONE DENSITY DECREASED [None]
  - LERICHE SYNDROME [None]
  - ATRIAL FIBRILLATION [None]
  - SUPRAVENTRICULAR TACHYCARDIA [None]
  - CHRONIC OBSTRUCTIVE PULMONARY DISEASE [None]
  - THROMBOSIS [None]
  - TOOTH DISORDER [None]
  - TOOTH ABSCESS [None]
  - ORAL DISORDER [None]
  - ELECTROCARDIOGRAM QRS COMPLEX ABNORMAL [None]
  - DEVICE FAILURE [None]
  - ANAEMIA MACROCYTIC [None]
  - SWELLING [None]
  - ABDOMINAL DISCOMFORT [None]
  - PAIN IN EXTREMITY [None]
  - PERIPHERAL VASCULAR DISORDER [None]
  - SYNCOPE [None]
  - CATARACT [None]
  - RASH [None]
  - ARTERIOSCLEROSIS [None]
  - HEADACHE [None]
  - PAIN IN JAW [None]
  - ARRHYTHMIA SUPRAVENTRICULAR [None]
  - DECREASED APPETITE [None]
